FAERS Safety Report 20650981 (Version 1)
Quarter: 2022Q1

REPORT INFORMATION
  Report Type: Spontaneous
  Country: None (occurrence: GB)
  Receive Date: 20220329
  Receipt Date: 20220329
  Transmission Date: 20220423
  Serious: Yes (Other)
  Sender: FDA-Public Use
  Company Number: GB-Breckenridge Pharmaceutical, Inc.-2127214

PATIENT
  Sex: Male
  Weight: 86 kg

DRUGS (1)
  1. OMEPRAZOLE [Suspect]
     Active Substance: OMEPRAZOLE
     Indication: Gastrooesophageal reflux disease
     Route: 048

REACTIONS (4)
  - Renal failure [Unknown]
  - Asthenia [Unknown]
  - Vitamin D deficiency [Unknown]
  - Vitamin B12 decreased [Unknown]
